FAERS Safety Report 21206009 (Version 1)
Quarter: 2022Q3

REPORT INFORMATION
  Report Type: Spontaneous
  Country: US (occurrence: US)
  Receive Date: 20220812
  Receipt Date: 20220812
  Transmission Date: 20221026
  Serious: Yes (Other)
  Sender: FDA-Public Use
  Company Number: US-SUNOVION-2022SUN002425

PATIENT
  Age: 14 Year
  Sex: Male

DRUGS (1)
  1. APTIOM [Suspect]
     Active Substance: ESLICARBAZEPINE ACETATE
     Indication: Epilepsy
     Dosage: 800 MG, QD (2 TABS OF 400MG)
     Route: 048
     Dates: start: 20220808

REACTIONS (4)
  - Seizure [Unknown]
  - Wrist fracture [Unknown]
  - Fatigue [Not Recovered/Not Resolved]
  - Fall [Unknown]
